FAERS Safety Report 5587587-0 (Version None)
Quarter: 2008Q1

REPORT INFORMATION
  Report Type: 
  Country: None (occurrence: None)
  Receive Date: 20080110
  Receipt Date: 20071231
  Transmission Date: 20080703
  Serious: Yes (Death)
  Sender: FDA-Public Use
  Company Number: US-MERCK-0801USA00252

PATIENT
  Age: 50 Year
  Sex: Female

DRUGS (6)
  1. HYDRODIURIL [Suspect]
     Route: 065
  2. QUETIAPINE FUMARATE [Suspect]
     Route: 065
  3. VENLAFAXINE HYDROCHLORIDE [Suspect]
     Route: 065
  4. ACETAMINOPHEN AND OXYCODONE HYDROCHLORIDE [Suspect]
     Route: 065
  5. DIAZEPAM [Suspect]
     Route: 065
  6. IBUPROFEN [Suspect]
     Route: 065

REACTIONS (2)
  - DRUG TOXICITY [None]
  - OVERDOSE [None]
